FAERS Safety Report 15189175 (Version 2)
Quarter: 2018Q3

REPORT INFORMATION
  Report Type: Report from Study
  Country: GB (occurrence: GB)
  Receive Date: 20180724
  Receipt Date: 20180816
  Transmission Date: 20181010
  Serious: Yes (Other)
  Sender: FDA-Public Use
  Company Number: GB-ROCHE-2045889

PATIENT
  Sex: Male

DRUGS (2)
  1. ROACTEMRA [Suspect]
     Active Substance: TOCILIZUMAB
     Indication: RHEUMATOID ARTHRITIS
     Route: 058
     Dates: start: 20171204
  2. INSULIN [Concomitant]
     Active Substance: INSULIN NOS

REACTIONS (9)
  - Cellulitis [Unknown]
  - Fatigue [Unknown]
  - Nasopharyngitis [Unknown]
  - Feeling abnormal [Recovered/Resolved]
  - Syncope [Unknown]
  - Increased bronchial secretion [Unknown]
  - Cough [Unknown]
  - Head discomfort [Unknown]
  - Lower respiratory tract infection [Unknown]
